FAERS Safety Report 5070223-X (Version None)
Quarter: 2006Q3

REPORT INFORMATION
  Report Type: 
  Country: None (occurrence: None)
  Receive Date: 20060731
  Receipt Date: 20060719
  Transmission Date: 20061208
  Serious: Yes (Hospitalization, Other)
  Sender: FDA-Public Use
  Company Number: 2006US001569

PATIENT
  Age: 69 Year
  Sex: Male
  Weight: 86 kg

DRUGS (6)
  1. ADENOSCAN                  (ADENOSCAN) [Suspect]
     Indication: SCAN MYOCARDIAL PERFUSION
     Dosage: TOTAL DOSE, IV NOS
     Route: 042
     Dates: start: 20060313, end: 20060313
  2. FUROSEMIDE (FUROSEMIDE SODIUM) [Concomitant]
  3. CARVEDILOL [Concomitant]
  4. SPIRONOLACTONE [Concomitant]
  5. DIGOXIN [Concomitant]
  6. AMIODARONE (AMOODARONE HYDROCHLORIDE) [Concomitant]

REACTIONS (2)
  - BLOOD CHLORIDE DECREASED [None]
  - CARDIAC FAILURE [None]
